FAERS Safety Report 8322033-5 (Version None)
Quarter: 2012Q2

REPORT INFORMATION
  Report Type: 
  Country: None (occurrence: None)
  Receive Date: 20120430
  Receipt Date: 20120423
  Transmission Date: 20120825
  Serious: Yes (Hospitalization, Other)
  Sender: FDA-Public Use
  Company Number: FR-B.I. PHARMACEUTICALS,INC./RIDGEFIELD-2012-FF-00226FF

PATIENT
  Age: 65 Year
  Sex: Male
  Weight: 120 kg

DRUGS (1)
  1. PRADAXA [Suspect]
     Indication: ATRIAL FIBRILLATION
     Route: 048

REACTIONS (3)
  - PERIPHERAL EMBOLISM [None]
  - DRUG INEFFECTIVE [None]
  - HYPERCOAGULATION [None]
